FAERS Safety Report 7990003-2 (Version None)
Quarter: 2011Q4

REPORT INFORMATION
  Report Type: 
  Country: None (occurrence: None)
  Receive Date: 20111219
  Receipt Date: 20110208
  Transmission Date: 20120403
  Serious: Yes (Other)
  Sender: FDA-Public Use
  Company Number: US-ASTRAZENECA-2011SE07423

PATIENT
  Sex: Female

DRUGS (1)
  1. CRESTOR [Suspect]
     Indication: HYPERCHOLESTEROLAEMIA
     Route: 048
     Dates: start: 20090101

REACTIONS (8)
  - MYOSITIS [None]
  - ABASIA [None]
  - MYOPATHY [None]
  - MUSCLE SPASMS [None]
  - BALANCE DISORDER [None]
  - MUSCULAR WEAKNESS [None]
  - HYPOAESTHESIA [None]
  - DYSSTASIA [None]
